FAERS Safety Report 20850899 (Version 1)
Quarter: 2022Q2

REPORT INFORMATION
  Report Type: Spontaneous
  Country: US (occurrence: US)
  Receive Date: 20220519
  Receipt Date: 20220519
  Transmission Date: 20220721
  Serious: No
  Sender: FDA-Public Use
  Company Number: US-PFIZER INC-202200307686

PATIENT
  Sex: Female

DRUGS (2)
  1. DOSTINEX [Suspect]
     Active Substance: CABERGOLINE
     Indication: Blood prolactin increased
     Dosage: 1 TABLET PER WEEK: 2 DOSES OF HALF A TABLET
  2. DOSTINEX [Suspect]
     Active Substance: CABERGOLINE
     Indication: Planning to become pregnant

REACTIONS (2)
  - Rathke^s cleft cyst [Unknown]
  - Off label use [Unknown]
